FAERS Safety Report 20827464 (Version 2)
Quarter: 2022Q2

REPORT INFORMATION
  Report Type: Spontaneous
  Country: ES (occurrence: ES)
  Receive Date: 20220513
  Receipt Date: 20220615
  Transmission Date: 20220721
  Serious: Yes (Life-Threatening, Hospitalization, Other)
  Sender: FDA-Public Use
  Company Number: ES-GE HEALTHCARE-2022CSU003026

PATIENT
  Age: 58 Year
  Sex: Female

DRUGS (2)
  1. VISIPAQUE [Suspect]
     Active Substance: IODIXANOL
     Indication: Computerised tomogram
     Dosage: UNK, SINGLE
     Route: 042
     Dates: start: 20220502, end: 20220502
  2. VISIPAQUE [Suspect]
     Active Substance: IODIXANOL
     Indication: Vocal cord paralysis

REACTIONS (4)
  - Respiratory failure [Recovered/Resolved]
  - Bronchospasm [Recovered/Resolved]
  - Hypersensitivity [Recovered/Resolved]
  - Erythema [Recovered/Resolved]

NARRATIVE: CASE EVENT DATE: 20220502
